FAERS Safety Report 26006869 (Version 1)
Quarter: 2025Q4

REPORT INFORMATION
  Report Type: Spontaneous
  Country: US (occurrence: None)
  Receive Date: 20251105
  Receipt Date: 20251105
  Transmission Date: 20260118
  Serious: Yes (Hospitalization)
  Sender: FDA-CTU
  Company Number: None

PATIENT
  Age: 22 Year
  Sex: Female
  Weight: 50.85 kg

DRUGS (7)
  1. DOXYCYCLINE HYDROCHLORIDE [Suspect]
     Active Substance: DOXYCYCLINE HYDROCHLORIDE
     Indication: Lyme disease
     Dosage: 28 CAPSULE(S) TWICE A DAY
     Dates: start: 20250816, end: 20250830
  2. FAMOTIDINE [Suspect]
     Active Substance: FAMOTIDINE
     Indication: Gastrooesophageal reflux disease
     Dosage: 30 TABLET(S) TWICE A DAY ORAL
     Route: 048
  3. bupropion hcl xl 150 once a day [Concomitant]
  4. MIRENA [Concomitant]
     Active Substance: LEVONORGESTREL
  5. VITAMIN D [Concomitant]
     Active Substance: VITAMIN D NOS
  6. magensium low dose daily [Concomitant]
  7. D-mannose 1500mg [Concomitant]

REACTIONS (4)
  - Vertigo [None]
  - Tinnitus [None]
  - Photophobia [None]
  - Hyperacusis [None]

NARRATIVE: CASE EVENT DATE: 20250820
